FAERS Safety Report 20448026 (Version 2)
Quarter: 2022Q3

REPORT INFORMATION
  Report Type: Spontaneous
  Country: US (occurrence: US)
  Receive Date: 20220209
  Receipt Date: 20220715
  Transmission Date: 20221027
  Serious: Yes (Other)
  Sender: FDA-Public Use
  Company Number: US-GILEAD-2022-0569042

PATIENT
  Age: 56 Year
  Sex: Male
  Weight: 81.647 kg

DRUGS (7)
  1. VIREAD [Suspect]
     Active Substance: TENOFOVIR DISOPROXIL FUMARATE
     Indication: HIV infection
     Dosage: UNK
     Route: 048
     Dates: start: 2002, end: 201302
  2. EPIVIR [Concomitant]
     Active Substance: LAMIVUDINE
  3. SUSTIVA [Concomitant]
     Active Substance: EFAVIRENZ
  4. TRIUMEQ [Concomitant]
     Active Substance: ABACAVIR SULFATE\DOLUTEGRAVIR SODIUM\LAMIVUDINE
  5. ZIAGEN [Concomitant]
     Active Substance: ABACAVIR SULFATE
  6. LISINOPRIL [Concomitant]
     Active Substance: LISINOPRIL
  7. TESTOSTERONE [Concomitant]
     Active Substance: TESTOSTERONE

REACTIONS (7)
  - Osteoporosis [Not Recovered/Not Resolved]
  - Pain [Not Recovered/Not Resolved]
  - Emotional distress [Not Recovered/Not Resolved]
  - Anxiety [Not Recovered/Not Resolved]
  - Anhedonia [Not Recovered/Not Resolved]
  - Fatigue [Not Recovered/Not Resolved]
  - Asthenia [Not Recovered/Not Resolved]

NARRATIVE: CASE EVENT DATE: 20120701
